FAERS Safety Report 6834175-1 (Version None)
Quarter: 2010Q3

REPORT INFORMATION
  Report Type: 
  Country: None (occurrence: None)
  Receive Date: 20100712
  Receipt Date: 20070413
  Transmission Date: 20110219
  Serious: No
  Sender: FDA-Public Use
  Company Number: US-PFIZER INC-2007030831

PATIENT
  Sex: Female
  Weight: 90.72 kg

DRUGS (6)
  1. CHANTIX [Suspect]
     Indication: SMOKING CESSATION THERAPY
     Dates: start: 20070412
  2. LITHIUM [Concomitant]
  3. ZYPREXA [Concomitant]
  4. REMERON [Concomitant]
  5. ALBUTEROL [Concomitant]
     Indication: DYSPNOEA
  6. FLUTICASONE PROPIONATE [Concomitant]
     Indication: DYSPNOEA

REACTIONS (1)
  - VOMITING [None]
